FAERS Safety Report 17969569 (Version 2)
Quarter: 2021Q1

REPORT INFORMATION
  Report Type: Report from Study
  Country: US (occurrence: US)
  Receive Date: 20200701
  Receipt Date: 20210216
  Transmission Date: 20210419
  Serious: No
  Sender: FDA-Public Use
  Company Number: NVSC2020US177874

PATIENT
  Sex: Female

DRUGS (1)
  1. EXELON PATCH [Suspect]
     Active Substance: RIVASTIGMINE
     Indication: PRODUCT USED FOR UNKNOWN INDICATION
     Dosage: UNK
     Route: 065

REACTIONS (11)
  - Post-traumatic stress disorder [Unknown]
  - Logorrhoea [Unknown]
  - Anxiety [Unknown]
  - Ill-defined disorder [Unknown]
  - Wrong technique in product usage process [Unknown]
  - Gait disturbance [Unknown]
  - Insomnia [Unknown]
  - Decreased appetite [Unknown]
  - Extra dose administered [Unknown]
  - Therapeutic response unexpected [Unknown]
  - Product dose omission issue [Unknown]
